FAERS Safety Report 6407246-1 (Version None)
Quarter: 2009Q4

REPORT INFORMATION
  Report Type: 
  Country: None (occurrence: None)
  Receive Date: 20091020
  Receipt Date: 20091015
  Transmission Date: 20100525
  Serious: Yes (Life-Threatening, Hospitalization, Other)
  Sender: FDA-Public Use
  Company Number: PHHY2009JP41949

PATIENT
  Sex: Male

DRUGS (10)
  1. DIOVAN [Suspect]
     Indication: HYPERTENSION
     Dosage: 40 MG, BID
     Route: 048
     Dates: end: 20090628
  2. ADALAT CC [Concomitant]
     Dosage: 2 DF, UNK
     Route: 048
  3. MAINTATE [Concomitant]
     Dosage: 5 MG, UNK
     Route: 048
  4. NITOROL [Concomitant]
     Dosage: 2 DF, UNK
     Route: 048
  5. MARZULENE S [Concomitant]
     Dosage: 3 DF, UNK
     Route: 048
  6. MUCOSTA [Concomitant]
     Dosage: 3 DF, UNK
     Route: 048
  7. ASPIRIN [Concomitant]
     Dosage: 100 MG, UNK
  8. LASIX [Concomitant]
     Dosage: 20 MG, UNK
  9. DIGITOXIN INJ [Concomitant]
     Dosage: 0.05 MG, UNK
  10. OMEPRAZOLE [Concomitant]
     Dosage: 20 MG, UNK

REACTIONS (5)
  - C-REACTIVE PROTEIN INCREASED [None]
  - EATING DISORDER [None]
  - HYPERSENSITIVITY [None]
  - LARYNGEAL OEDEMA [None]
  - RESPIRATORY DISORDER [None]
